FAERS Safety Report 6287921-2 (Version None)
Quarter: 2009Q3

REPORT INFORMATION
  Report Type: 
  Country: None (occurrence: None)
  Receive Date: 20090729
  Receipt Date: 20090721
  Transmission Date: 20100115
  Serious: Yes (Hospitalization)
  Sender: FDA-Public Use
  Company Number: US-JNJFOC-20090707655

PATIENT
  Sex: Female
  Weight: 123.38 kg

DRUGS (13)
  1. DURAGESIC-100 [Suspect]
     Indication: BACK PAIN
     Route: 062
  2. ZIAC [Concomitant]
     Indication: CARDIAC DISORDER
     Route: 048
  3. BENICAR [Concomitant]
     Indication: HYPERTENSION
     Route: 048
  4. KLONOPIN [Concomitant]
     Indication: NERVOUS SYSTEM DISORDER
     Route: 048
  5. ZOLOFT [Concomitant]
     Indication: NERVOUS SYSTEM DISORDER
     Route: 048
  6. CRESTOR [Concomitant]
     Indication: BLOOD CHOLESTEROL INCREASED
     Route: 048
  7. SINGULAIR [Concomitant]
     Indication: ASTHMA
     Dosage: AT NIGHT
     Route: 048
  8. SEDAPAP [Concomitant]
     Indication: HEADACHE
     Route: 048
  9. AXERT [Concomitant]
     Indication: HEADACHE
     Route: 048
  10. HYDROXYZINE PAMOATE [Concomitant]
     Indication: SKIN DISORDER
     Route: 048
  11. ZANTAC [Concomitant]
     Indication: GASTROOESOPHAGEAL REFLUX DISEASE
     Route: 048
  12. FLEXERIL [Concomitant]
     Indication: MUSCLE SPASMS
     Route: 048
  13. ZYRTEC [Concomitant]
     Indication: MULTIPLE ALLERGIES
     Route: 048

REACTIONS (4)
  - ABDOMINAL PAIN UPPER [None]
  - PERIPHERAL ARTERIAL OCCLUSIVE DISEASE [None]
  - PNEUMONIA [None]
  - STAPHYLOCOCCAL INFECTION [None]
